FAERS Safety Report 7178953-0 (Version None)
Quarter: 2010Q4

REPORT INFORMATION
  Report Type: 
  Country: None (occurrence: None)
  Receive Date: 20101221
  Receipt Date: 20101207
  Transmission Date: 20110411
  Serious: Yes (Hospitalization, Other)
  Sender: FDA-Public Use
  Company Number: PHEH2008US07606

PATIENT
  Sex: Female
  Weight: 70.9 kg

DRUGS (32)
  1. AREDIA [Suspect]
     Dosage: ONCE MONTHLY
     Route: 042
     Dates: start: 20020101
  2. ZOMETA [Suspect]
     Dosage: 4MG
  3. OXYCONTIN [Concomitant]
     Indication: PAIN
  4. VICODIN [Concomitant]
  5. RYTHMOL [Concomitant]
     Dosage: 50 MG, 2QD
  6. IRON [Concomitant]
     Dosage: 2 QD
  7. VIOXX [Concomitant]
     Dosage: 2 QD
  8. HYDROCODONE [Concomitant]
     Indication: PAIN
  9. INTERFERON [Concomitant]
     Indication: MULTIPLE MYELOMA
  10. NEURONTIN [Concomitant]
  11. HEMODIALYSIS [Concomitant]
     Indication: MULTIPLE MYELOMA
  12. ASPIRIN [Concomitant]
  13. PAMELOR [Concomitant]
     Indication: LIMB DISCOMFORT
  14. EPOGEN [Concomitant]
  15. RENAGEL [Concomitant]
  16. RENA-VITE [Concomitant]
  17. FUROSEMIDE [Concomitant]
  18. POTASSIUM [Concomitant]
  19. ARANESP [Concomitant]
  20. DEXAMETHASONE [Concomitant]
  21. BACTRIM [Concomitant]
  22. THALIDOMIDE [Concomitant]
  23. ZOFRAN [Concomitant]
     Dosage: 8 MG,
  24. M.V.I. [Concomitant]
  25. ASPIRIN [Concomitant]
     Dosage: 81 MG, QD
     Route: 048
  26. FLEXERIL [Concomitant]
     Dosage: 5MG, Q8 PRN
     Route: 048
  27. TYLENOL (CAPLET) [Concomitant]
     Dosage: ONE TABLET, Q6 PRN
     Route: 048
  28. NEPHRO-VITE [Concomitant]
     Indication: RENAL FAILURE
  29. ZEMPLAR [Concomitant]
  30. SODIUM BICARBONATE [Concomitant]
     Dosage: 650 MG, TID
  31. PYRIDOXINE HCL [Concomitant]
     Dosage: 50 MG, QD
  32. K-DUR [Concomitant]
     Dosage: 10 MEQ, QD

REACTIONS (100)
  - ABSCESS DRAINAGE [None]
  - ABSCESS ORAL [None]
  - ANAEMIA MACROCYTIC [None]
  - ANXIETY [None]
  - ARTERIOVENOUS FISTULA [None]
  - ARTHRALGIA [None]
  - BACK DISORDER [None]
  - BACK PAIN [None]
  - BLOOD ALBUMIN DECREASED [None]
  - BLOOD BICARBONATE DECREASED [None]
  - BLOOD CREATININE INCREASED [None]
  - BLOOD PARATHYROID HORMONE INCREASED [None]
  - BLOOD PHOSPHORUS INCREASED [None]
  - BODY DYSMORPHIC DISORDER [None]
  - BONE ABSCESS [None]
  - BONE DISORDER [None]
  - BONE MARROW OEDEMA [None]
  - CELLULITIS [None]
  - CEREBROVASCULAR DISORDER [None]
  - COUGH [None]
  - DEHYDRATION [None]
  - DELIRIUM [None]
  - DIARRHOEA [None]
  - DIVERTICULUM [None]
  - DIZZINESS [None]
  - DYSPNOEA [None]
  - ELECTROLYTE IMBALANCE [None]
  - FALL [None]
  - FISTULA [None]
  - GLAUCOMA [None]
  - HAEMODIALYSIS [None]
  - HEPATIC STEATOSIS [None]
  - HYPERTENSION [None]
  - HYPOAESTHESIA [None]
  - HYPOCALCAEMIA [None]
  - HYPOGAMMAGLOBULINAEMIA [None]
  - HYPOKALAEMIA [None]
  - IMMUNOGLOBULINS DECREASED [None]
  - IMPAIRED GASTRIC EMPTYING [None]
  - IMPAIRED HEALING [None]
  - INFECTION [None]
  - INJURY [None]
  - INTERVERTEBRAL DISC OPERATION [None]
  - INTERVERTEBRAL DISC PROTRUSION [None]
  - INTERVERTEBRAL DISC SPACE NARROWING [None]
  - JOINT INJURY [None]
  - LIGAMENT DISORDER [None]
  - LIMB DISCOMFORT [None]
  - LUMBAR SPINAL STENOSIS [None]
  - LYMPHADENOPATHY [None]
  - MEAN CELL HAEMOGLOBIN CONCENTRATION DECREASED [None]
  - MEAN CELL HAEMOGLOBIN INCREASED [None]
  - MEAN CELL VOLUME INCREASED [None]
  - MUCOSAL INFLAMMATION [None]
  - MULTIPLE MYELOMA [None]
  - MUSCLE INJURY [None]
  - MUSCULAR WEAKNESS [None]
  - NEPHROSCLEROSIS [None]
  - NEPHROTIC SYNDROME [None]
  - NEUROPATHY PERIPHERAL [None]
  - NEUTROPENIA [None]
  - OEDEMA [None]
  - OEDEMA PERIPHERAL [None]
  - ORAL PAIN [None]
  - OROPHARYNGEAL BLISTERING [None]
  - OROPHARYNGEAL PAIN [None]
  - OSTEITIS [None]
  - OSTEOLYSIS [None]
  - OSTEOMYELITIS [None]
  - OSTEONECROSIS OF JAW [None]
  - OSTEOPENIA [None]
  - OSTEOPOROSIS [None]
  - OSTEOSCLEROSIS [None]
  - OTITIS MEDIA [None]
  - PAIN [None]
  - PAIN IN JAW [None]
  - PANCYTOPENIA [None]
  - PERIODONTAL DISEASE [None]
  - PERIODONTITIS [None]
  - PHYSICAL DISABILITY [None]
  - PLASMACYTOSIS [None]
  - PRIMARY SEQUESTRUM [None]
  - PROTEINURIA [None]
  - RADICULAR PAIN [None]
  - RENAL FAILURE [None]
  - RENAL FAILURE CHRONIC [None]
  - SALIVARY GLAND DISORDER [None]
  - SEPSIS [None]
  - SEQUESTRECTOMY [None]
  - SIALOADENITIS [None]
  - SINUS CONGESTION [None]
  - SPINAL HAEMANGIOMA [None]
  - SPINAL LAMINECTOMY [None]
  - SPONDYLOARTHROPATHY [None]
  - SPONDYLOLYSIS [None]
  - THROMBOCYTOPENIA [None]
  - TOOTH DISORDER [None]
  - TOOTH EXTRACTION [None]
  - TOOTHACHE [None]
  - VOMITING [None]
